FAERS Safety Report 7326189-2 (Version None)
Quarter: 2011Q1

REPORT INFORMATION
  Report Type: 
  Country: None (occurrence: None)
  Receive Date: 20110302
  Receipt Date: 20110217
  Transmission Date: 20110831
  Serious: Yes (Other)
  Sender: FDA-Public Use
  Company Number: GB-ELI_LILLY_AND_COMPANY-GB201102004959

PATIENT
  Age: 38 Year
  Sex: Male

DRUGS (1)
  1. ZYPADHERA [Suspect]
     Dosage: UNK, UNK
     Route: 030
     Dates: start: 20100601

REACTIONS (1)
  - THROMBOSIS [None]
